FAERS Safety Report 8436885-1 (Version None)
Quarter: 2012Q2

REPORT INFORMATION
  Report Type: 
  Country: None (occurrence: None)
  Receive Date: 20120614
  Receipt Date: 20100503
  Transmission Date: 20120825
  Serious: Yes (Other)
  Sender: FDA-Public Use
  Company Number: US-NOVOPROD-303137

PATIENT
  Age: 12 Year
  Sex: Female
  Weight: 32.38 kg

DRUGS (2)
  1. NORDITROPIN [Suspect]
     Indication: TURNER'S SYNDROME
     Dosage: UNKNOWN
     Route: 058
     Dates: start: 20080715, end: 20090120
  2. ESTRADIOL [Concomitant]
     Indication: PRODUCT USED FOR UNKNOWN INDICATION
     Dosage: 0.00625 MG WEEKLY
     Route: 062

REACTIONS (1)
  - PAPILLOEDEMA [None]
